FAERS Safety Report 9457035 (Version 1)
Quarter: 2013Q3

REPORT INFORMATION
  Report Type: Spontaneous
  Country: US (occurrence: US)
  Receive Date: 20130814
  Receipt Date: 20130814
  Transmission Date: 20140515
  Serious: Yes (Other)
  Sender: FDA-Public Use
  Company Number: US-BIOGENIDEC-2013BI073708

PATIENT
  Sex: Female

DRUGS (13)
  1. AVONEX [Suspect]
     Indication: MULTIPLE SCLEROSIS
     Route: 030
     Dates: start: 20120306, end: 20130716
  2. BETASERON [Concomitant]
     Indication: MULTIPLE SCLEROSIS
  3. ASPIRIN [Concomitant]
     Route: 048
  4. BENAZEPRIL-HYDROCHLOROTHIAZIDE 20 [Concomitant]
     Route: 048
  5. CENTRUM SILVER [Concomitant]
     Route: 048
  6. CITALOPRAM HYDROBROMIDE [Concomitant]
     Route: 048
  7. CLONAZEPAM [Concomitant]
     Route: 048
  8. CYANOCOBALAMIN [Concomitant]
  9. GABATRIL [Concomitant]
     Route: 048
  10. HYDROCODONE ACETAMINOPHEN [Concomitant]
     Route: 048
  11. OMEPRAZOLE [Concomitant]
     Route: 048
  12. TOPIRAMATE [Concomitant]
     Route: 048
  13. TRAZODONE HCL [Concomitant]
     Route: 048

REACTIONS (3)
  - Convulsion [Unknown]
  - Hysterectomy [Recovered/Resolved]
  - Multiple sclerosis [Unknown]
